FAERS Safety Report 25776620 (Version 1)
Quarter: 2025Q3

REPORT INFORMATION
  Report Type: Spontaneous
  Country: US (occurrence: US)
  Receive Date: 20250909
  Receipt Date: 20250909
  Transmission Date: 20251021
  Serious: No
  Sender: DOMPE FARMACEUTICI
  Company Number: US-FARMAPROD-202503-0786

PATIENT
  Sex: Female

DRUGS (36)
  1. OXERVATE [Suspect]
     Active Substance: CENEGERMIN-BKBJ
     Indication: Neurotrophic keratopathy
     Route: 047
     Dates: start: 20250225
  2. OXERVATE [Suspect]
     Active Substance: CENEGERMIN-BKBJ
     Indication: Eye ulcer
  3. ERYTHROMYCIN [Concomitant]
     Active Substance: ERYTHROMYCIN
     Indication: Dry eye
     Dates: start: 202412
  4. LOTEMAX [Concomitant]
     Active Substance: LOTEPREDNOL ETABONATE
  5. XARELTO [Concomitant]
     Active Substance: RIVAROXABAN
  6. PROLIA [Concomitant]
     Active Substance: DENOSUMAB
  7. SPIRONOLACTONE [Concomitant]
     Active Substance: SPIRONOLACTONE
  8. DAPAGLIFLOZIN [Concomitant]
     Active Substance: DAPAGLIFLOZIN
  9. FEXOFENADINE HYDROCHLORIDE [Concomitant]
     Active Substance: FEXOFENADINE HYDROCHLORIDE
  10. NUCALA [Concomitant]
     Active Substance: MEPOLIZUMAB
  11. PREDNISONE [Concomitant]
     Active Substance: PREDNISONE
  12. TOPROL XL [Concomitant]
     Active Substance: METOPROLOL SUCCINATE
  13. ZOCOR [Concomitant]
     Active Substance: SIMVASTATIN
  14. ADVAIR DISKUS [Concomitant]
     Active Substance: FLUTICASONE PROPIONATE\SALMETEROL XINAFOATE
  15. PROTONIX [Concomitant]
     Active Substance: PANTOPRAZOLE SODIUM
  16. CALCIUM [Concomitant]
     Active Substance: CALCIUM
  17. VALACYCLOVIR [Concomitant]
     Active Substance: VALACYCLOVIR HYDROCHLORIDE
  18. RAMIPRIL [Concomitant]
     Active Substance: RAMIPRIL
  19. SINGULAIR [Concomitant]
     Active Substance: MONTELUKAST SODIUM
  20. FASENRA [Concomitant]
     Active Substance: BENRALIZUMAB
  21. CETIRIZINE HCL [Concomitant]
     Active Substance: CETIRIZINE HYDROCHLORIDE
  22. XOPENEX HFA [Concomitant]
     Active Substance: LEVALBUTEROL TARTRATE
  23. LOTEPREDNOL ETABONATE [Concomitant]
     Active Substance: LOTEPREDNOL ETABONATE
  24. ASCORBIC ACID [Concomitant]
     Active Substance: ASCORBIC ACID
  25. RAMIPRIL [Concomitant]
     Active Substance: RAMIPRIL
  26. ALBUTEROL SULFATE [Concomitant]
     Active Substance: ALBUTEROL SULFATE
  27. PREDNISONE [Concomitant]
     Active Substance: PREDNISONE
  28. VITAMIN D3 [Concomitant]
     Active Substance: CHOLECALCIFEROL
  29. OMEPRAZOLE [Concomitant]
     Active Substance: OMEPRAZOLE
  30. MECLIZINE HYDROCHLORIDE [Concomitant]
     Active Substance: MECLIZINE HYDROCHLORIDE
  31. OLOPATADINE HYDROCHLORIDE [Concomitant]
     Active Substance: OLOPATADINE HYDROCHLORIDE
  32. ENTRESTO [Concomitant]
     Active Substance: SACUBITRIL\VALSARTAN
  33. METOPROLOL SUCCINATE [Concomitant]
     Active Substance: METOPROLOL SUCCINATE
  34. OFLOXACIN [Concomitant]
     Active Substance: OFLOXACIN
     Indication: Neurotrophic keratopathy
     Route: 047
     Dates: start: 20250203
  35. OFLOXACIN [Concomitant]
     Active Substance: OFLOXACIN
     Indication: Eye ulcer
  36. HYPROMELLOSE, UNSPECIFIED [Concomitant]
     Active Substance: HYPROMELLOSE, UNSPECIFIED
     Indication: Dry eye
     Route: 047
     Dates: start: 202412

REACTIONS (2)
  - Ocular hyperaemia [Recovered/Resolved]
  - Eye irritation [Recovered/Resolved]
